FAERS Safety Report 19269312 (Version 1)
Quarter: 2021Q2

REPORT INFORMATION
  Report Type: Spontaneous
  Country: US (occurrence: US)
  Receive Date: 20210517
  Receipt Date: 20210517
  Transmission Date: 20210717
  Serious: No
  Sender: FDA-Public Use
  Company Number: US-BAUSCH-BL-2021-013127

PATIENT
  Age: 51 Year
  Sex: Female
  Weight: 92.62 kg

DRUGS (2)
  1. ATRALIN [Suspect]
     Active Substance: TRETINOIN
     Indication: ACNE
     Dosage: STARTED ABOUT 10 YEARS AGO?APPLY TO THE FACE DAILY AT BEDTIME
     Route: 061
     Dates: start: 2011
  2. ATRALIN [Suspect]
     Active Substance: TRETINOIN
     Dosage: APPLY TO THE FACE DAILY AT BEDTIME
     Route: 061
     Dates: start: 20210403, end: 20210408

REACTIONS (5)
  - Flushing [Recovering/Resolving]
  - Product quality issue [Unknown]
  - Pruritus [Recovering/Resolving]
  - Product physical consistency issue [Unknown]
  - Urticaria [Recovering/Resolving]

NARRATIVE: CASE EVENT DATE: 20210404
